FAERS Safety Report 6141671-1 (Version None)
Quarter: 2009Q1

REPORT INFORMATION
  Report Type: 
  Country: None (occurrence: None)
  Receive Date: 20090331
  Receipt Date: 20090331
  Transmission Date: 20090719
  Serious: No
  Sender: FDA-Public Use
  Company Number: None

PATIENT
  Age: 41 Year
  Sex: Female
  Weight: 92.5338 kg

DRUGS (3)
  1. ASTEPRO [Suspect]
     Indication: NASOPHARYNGITIS
     Dosage: 2 SPRAYS 2X/DAY NASAL
     Route: 045
     Dates: start: 20090323, end: 20090330
  2. ASTEPRO [Suspect]
     Indication: SEASONAL ALLERGY
     Dosage: 2 SPRAYS 2X/DAY NASAL
     Route: 045
     Dates: start: 20090323, end: 20090330
  3. ALLEGRA [Concomitant]

REACTIONS (3)
  - BLOODY DISCHARGE [None]
  - DRUG INEFFECTIVE [None]
  - NASAL CONGESTION [None]
